FAERS Safety Report 6550973-6 (Version None)
Quarter: 2010Q1

REPORT INFORMATION
  Report Type: 
  Country: None (occurrence: None)
  Receive Date: 20100122
  Receipt Date: 20100122
  Transmission Date: 20100710
  Serious: Yes (Other)
  Sender: FDA-Public Use
  Company Number: None

PATIENT
  Age: 80 Year
  Sex: Male
  Weight: 71.6683 kg

DRUGS (2)
  1. PLAVIX [Suspect]
     Indication: CORONARY ARTERY BYPASS
     Dosage: 1 TABLET DAILY PO
     Route: 048
  2. PLAVIX [Suspect]
     Indication: POST PROCEDURAL COMPLICATION
     Dosage: 1 TABLET DAILY PO
     Route: 048

REACTIONS (2)
  - CONTUSION [None]
  - HAEMORRHAGE [None]
